FAERS Safety Report 15212105 (Version 1)
Quarter: 2018Q3

REPORT INFORMATION
  Report Type: Report from Study
  Country: None (occurrence: CA)
  Receive Date: 20180730
  Receipt Date: 20180730
  Transmission Date: 20181010
  Serious: Yes (Hospitalization, Other)
  Sender: FDA-Public Use
  Company Number: CA-ABBVIE-18K-028-2398990-00

PATIENT
  Age: 33 Year
  Sex: Male
  Weight: 100.2 kg

DRUGS (2)
  1. HUMIRA [Suspect]
     Active Substance: ADALIMUMAB
     Indication: CROHN^S DISEASE
     Route: 058
  2. METHOTREXATE. [Concomitant]
     Active Substance: METHOTREXATE
     Indication: PRODUCT USED FOR UNKNOWN INDICATION
     Route: 048
     Dates: start: 20180625

REACTIONS (4)
  - Toothache [Unknown]
  - Hospitalisation [Unknown]
  - Swelling face [Unknown]
  - Post procedural infection [Unknown]

NARRATIVE: CASE EVENT DATE: 20180721
